FAERS Safety Report 5129925-9 (Version None)
Quarter: 2006Q4

REPORT INFORMATION
  Report Type: 
  Country: None (occurrence: None)
  Receive Date: 20061013
  Receipt Date: 20061006
  Transmission Date: 20070319
  Serious: Yes (Life-Threatening, Hospitalization)
  Sender: FDA-Public Use
  Company Number: 111847ISR

PATIENT
  Age: 48 Year
  Sex: Male

DRUGS (9)
  1. METOPROLOL TARTRATE [Suspect]
  2. ACETAMINOPHEN [Suspect]
     Dosage: 1300 MG
  3. DEXTROPROPOXYPHENE NAPSILATE [Suspect]
     Indication: HERNIA REPAIR
     Dosage: 200 MG ORAL
     Route: 048
  4. AMITRIPTYLINE HCL [Concomitant]
  5. ATORVASTATIN CALCIUM [Concomitant]
  6. DILTIAZEM HCL [Concomitant]
  7. FOSINOPRIL SODIUM [Concomitant]
  8. LEVOTHYROXINE SODIUM [Concomitant]
  9. WARFARIN SODIUM [Concomitant]

REACTIONS (5)
  - ATRIAL FIBRILLATION [None]
  - BRADYCARDIA [None]
  - DRUG CLEARANCE DECREASED [None]
  - DRUG INTERACTION [None]
  - HYPOTENSION [None]
